FAERS Safety Report 8031032-2 (Version None)
Quarter: 2012Q1

REPORT INFORMATION
  Report Type: 
  Country: None (occurrence: None)
  Receive Date: 20120109
  Receipt Date: 20120105
  Transmission Date: 20120608
  Serious: No
  Sender: FDA-Public Use
  Company Number: US-PFIZER INC-2012004717

PATIENT

DRUGS (2)
  1. XANAX [Suspect]
     Dosage: TOOK 4 XANAX
  2. ETHANOL [Suspect]

REACTIONS (1)
  - BLOOD ALCOHOL INCREASED [None]
